FAERS Safety Report 7183286-2 (Version None)
Quarter: 2010Q4

REPORT INFORMATION
  Report Type: 
  Country: None (occurrence: None)
  Receive Date: 20101222
  Receipt Date: 20100630
  Transmission Date: 20110411
  Serious: No
  Sender: FDA-Public Use
  Company Number: A0867930A

PATIENT
  Age: 32 Year
  Sex: Male

DRUGS (4)
  1. FLONASE [Suspect]
     Route: 045
  2. FLOVENT [Suspect]
     Indication: ASTHMA
  3. VENTOLIN [Suspect]
     Indication: ASTHMA
  4. ALBUTEROL [Concomitant]

REACTIONS (1)
  - COUGH [None]
